FAERS Safety Report 4699749-5 (Version None)
Quarter: 2005Q2

REPORT INFORMATION
  Report Type: 
  Country: None (occurrence: None)
  Receive Date: 20050623
  Receipt Date: 20050616
  Transmission Date: 20051028
  Serious: No
  Sender: FDA-Public Use
  Company Number: 2005UW09308

PATIENT
  Age: 20 Year

DRUGS (5)
  1. SEROQUEL [Suspect]
  2. NO MATCH [Concomitant]
  3. CLONAZEPAM [Concomitant]
  4. FLUVOXAMINE [Concomitant]
  5. SERTRALINE HCL [Concomitant]

REACTIONS (5)
  - BLOOD PRESSURE INCREASED [None]
  - HEART RATE INCREASED [None]
  - MYDRIASIS [None]
  - SOMNOLENCE [None]
  - SUICIDE ATTEMPT [None]
